FAERS Safety Report 24787100 (Version 1)
Quarter: 2024Q4

REPORT INFORMATION
  Report Type: Report from Study
  Country: US (occurrence: US)
  Receive Date: 20241230
  Receipt Date: 20241230
  Transmission Date: 20250115
  Serious: Yes (Other)
  Sender: UCB
  Company Number: US-UCBSA-2024067746

PATIENT
  Age: 15 Year
  Sex: Male
  Weight: 65.09 kg

DRUGS (1)
  1. FINTEPLA [Suspect]
     Active Substance: FENFLURAMINE
     Indication: Product used for unknown indication
     Dosage: 26 MILLIGRAM PER DAY
     Dates: start: 20231102

REACTIONS (2)
  - Mitral valve thickening [Unknown]
  - Cardiac index increased [Unknown]

NARRATIVE: CASE EVENT DATE: 20241213
